FAERS Safety Report 8563756-2 (Version None)
Quarter: 2012Q3

REPORT INFORMATION
  Report Type: 
  Country: None (occurrence: None)
  Receive Date: 20120803
  Receipt Date: 20101015
  Transmission Date: 20120928
  Serious: Yes (Hospitalization, Other)
  Sender: FDA-Public Use
  Company Number: US-BAYER-200935621NA

PATIENT
  Age: 22 Year
  Sex: Female

DRUGS (9)
  1. YASMIN [Suspect]
     Route: 048
     Dates: start: 20050421, end: 20081023
  2. METFORMIN HYDROCHLORIDE [Concomitant]
     Route: 048
  3. YAZ [Suspect]
     Route: 048
     Dates: start: 20050421, end: 20081023
  4. REGLAN [Concomitant]
     Dosage: 10 MG (DAILY DOSE), ,
  5. TENORETIC [Concomitant]
  6. CYMBALTA [Concomitant]
     Dosage: 60 MG (DAILY DOSE), QD,
  7. PROTONIX [Concomitant]
     Dosage: 40 MG (DAILY DOSE), QD,
  8. TENORETIC [Concomitant]
     Dosage: 50 MG (DAILY DOSE), ,
  9. LIPITOR [Concomitant]

REACTIONS (5)
  - CHOLELITHIASIS [None]
  - NAUSEA [None]
  - CHOLECYSTITIS CHRONIC [None]
  - ABDOMINAL PAIN UPPER [None]
  - VOMITING [None]
